FAERS Safety Report 4539603-2 (Version None)
Quarter: 2004Q4

REPORT INFORMATION
  Report Type: 
  Country: None (occurrence: None)
  Receive Date: 20041228
  Receipt Date: 20041222
  Transmission Date: 20050328
  Serious: Yes (Death, Other)
  Sender: FDA-Public Use
  Company Number: PHBS2004JP17291

PATIENT
  Age: 7 Year
  Sex: Male

DRUGS (1)
  1. CYCLOSPORINE [Suspect]
     Dates: start: 20040401

REACTIONS (4)
  - DEATH [None]
  - ENCEPHALITIS VIRAL [None]
  - GRAFT VERSUS HOST DISEASE [None]
  - PULMONARY HAEMORRHAGE [None]
